FAERS Safety Report 9908302 (Version 1)
Quarter: 2014Q1

REPORT INFORMATION
  Report Type: Spontaneous
  Country: US (occurrence: US)
  Receive Date: 20140219
  Receipt Date: 20140219
  Transmission Date: 20141002
  Serious: Yes (Other)
  Sender: FDA-Public Use
  Company Number: US-TARO PHARMACEUTICALS U.S.A., INC-2014SUN00292

PATIENT
  Age: 65 Year
  Sex: Male

DRUGS (3)
  1. AMIODARONE [Suspect]
     Indication: ATRIAL FIBRILLATION
     Route: 065
  2. DABIGATRAN [Interacting]
     Indication: ANTICOAGULANT THERAPY
     Dosage: 150 MG, BID
     Route: 065
  3. WARFARIN [Concomitant]

REACTIONS (3)
  - Drug interaction [Unknown]
  - Gastritis erosive [Unknown]
  - Melaena [Unknown]
